FAERS Safety Report 4442733-7 (Version None)
Quarter: 2004Q3

REPORT INFORMATION
  Report Type: 
  Country: None (occurrence: None)
  Receive Date: 20040903
  Receipt Date: 20040616
  Transmission Date: 20050211
  Serious: Yes (Other)
  Sender: FDA-Public Use
  Company Number: 2004UW12543

PATIENT
  Age: 43 Year
  Sex: Male
  Weight: 77.1115 kg

DRUGS (2)
  1. CRESTOR [Suspect]
  2. LIPITOR [Concomitant]

REACTIONS (2)
  - NAUSEA [None]
  - ORAL PAIN [None]
